FAERS Safety Report 23773751 (Version 1)
Quarter: 2024Q2

REPORT INFORMATION
  Report Type: Spontaneous
  Country: CN (occurrence: CN)
  Receive Date: 20240423
  Receipt Date: 20240423
  Transmission Date: 20240716
  Serious: Yes (Other)
  Sender: FDA-Public Use
  Company Number: CN-PFIZER INC-PV202400052841

PATIENT
  Age: 17 Month
  Sex: Female
  Weight: 11.5 kg

DRUGS (3)
  1. AZITHROMYCIN [Suspect]
     Active Substance: AZITHROMYCIN
     Indication: Pneumonia
     Dosage: 0.1 G, 1X/DAY
     Route: 048
     Dates: start: 20240407, end: 20240407
  2. PIPERACILLIN AND TAZOBACTAM [Suspect]
     Active Substance: PIPERACILLIN SODIUM\TAZOBACTAM SODIUM
     Indication: Pneumonia
     Dosage: 1 G, 3X/DAY
     Route: 041
     Dates: start: 20240404, end: 20240407
  3. SODIUM CHLORIDE [Concomitant]
     Active Substance: SODIUM CHLORIDE
     Indication: Vehicle solution use
     Dosage: 50 ML, 3X/DAY
     Route: 041
     Dates: start: 20240404, end: 20240407

REACTIONS (5)
  - Rash erythematous [Recovered/Resolved]
  - Pruritus [Unknown]
  - Heart rate increased [Unknown]
  - Respiratory rate increased [Unknown]
  - Off label use [Unknown]

NARRATIVE: CASE EVENT DATE: 20240407
